FAERS Safety Report 8453701-2 (Version None)
Quarter: 2012Q2

REPORT INFORMATION
  Report Type: 
  Country: None (occurrence: None)
  Receive Date: 20120620
  Receipt Date: 20120607
  Transmission Date: 20120825
  Serious: Yes (Hospitalization)
  Sender: FDA-Public Use
  Company Number: US-ACTELION-A-US2011-48675

PATIENT

DRUGS (2)
  1. LASIX [Concomitant]
  2. EPOPROSTENOL SODIUM [Suspect]
     Indication: PULMONARY ARTERIAL HYPERTENSION
     Dosage: 7 NG/KG, PER MIN
     Route: 042
     Dates: start: 20110427

REACTIONS (6)
  - INFECTION [None]
  - HEADACHE [None]
  - FATIGUE [None]
  - PULMONARY ARTERIAL HYPERTENSION [None]
  - CONDITION AGGRAVATED [None]
  - PAIN IN JAW [None]
